FAERS Safety Report 15498740 (Version 2)
Quarter: 2018Q4

REPORT INFORMATION
  Report Type: Spontaneous
  Country: US (occurrence: US)
  Receive Date: 20181015
  Receipt Date: 20181113
  Transmission Date: 20190205
  Serious: Yes (Hospitalization)
  Sender: FDA-Public Use
  Company Number: US-ASTELLAS-2018US043922

PATIENT
  Age: 86 Year
  Sex: Female

DRUGS (3)
  1. NITROGLYCERIN. [Suspect]
     Active Substance: NITROGLYCERIN
     Indication: CHEST PAIN
     Dosage: UNK UNK, UNKNOWN FREQ.
     Route: 060
  2. REGADENOSON [Suspect]
     Active Substance: REGADENOSON
     Indication: CARDIAC STRESS TEST
     Dosage: 0.4 MG, TOTAL DOSE (ADMINISTERED IV OVER 30 SECONDS)
     Route: 042
  3. TETROFOSMIN. [Concomitant]
     Active Substance: TETROFOSMIN
     Indication: CARDIAC STRESS TEST
     Dosage: UNK UNK, UNKNOWN FREQ.(30 MCI (1110 MBQ) TC-99 M TETROFOSMIN)
     Route: 065

REACTIONS (7)
  - Chest pain [Recovered/Resolved]
  - Hypotension [Recovered/Resolved]
  - Lethargy [Recovered/Resolved]
  - Mental status changes [Recovered/Resolved]
  - Electrocardiogram ST segment depression [Recovered/Resolved]
  - Incorrect product administration duration [Unknown]
  - Electrocardiogram ST segment elevation [Recovered/Resolved]
